FAERS Safety Report 5252680-9 (Version None)
Quarter: 2007Q1

REPORT INFORMATION
  Report Type: 
  Country: None (occurrence: None)
  Receive Date: 20070301
  Receipt Date: 20061108
  Transmission Date: 20070707
  Serious: Yes (Hospitalization, Other)
  Sender: FDA-Public Use
  Company Number: US-GLAXOSMITHKLINE-A0626731A

PATIENT
  Age: 47 Year
  Sex: Male

DRUGS (5)
  1. LAMICTAL [Suspect]
     Indication: BIPOLAR DISORDER
     Dosage: 12.5MG PER DAY
     Route: 048
     Dates: start: 20061106
  2. ZOCOR [Concomitant]
  3. FOCALIN [Concomitant]
  4. KLONOPIN [Concomitant]
  5. ACIPHEX [Concomitant]

REACTIONS (1)
  - CHEST PAIN [None]
